FAERS Safety Report 7611256-6 (Version None)
Quarter: 2011Q3

REPORT INFORMATION
  Report Type: 
  Country: None (occurrence: None)
  Receive Date: 20110707
  Receipt Date: 20110624
  Transmission Date: 20111222
  Serious: Yes (Other)
  Sender: FDA-Public Use
  Company Number: 20110486

PATIENT
  Age: 29 Year
  Sex: Female
  Weight: 53.0709 kg

DRUGS (3)
  1. LYRICA [Concomitant]
  2. UNSPECIFIED MULTIVITAMIN [Concomitant]
  3. SPRIX [Suspect]
     Indication: MIGRAINE
     Dosage: 1 SPRAY RIGHT NOSTRIL
     Route: 045
     Dates: start: 20110623, end: 20110623

REACTIONS (3)
  - HEADACHE [None]
  - FEAR [None]
  - EYE PAIN [None]
